FAERS Safety Report 7797279-5 (Version None)
Quarter: 2011Q4

REPORT INFORMATION
  Report Type: 
  Country: None (occurrence: None)
  Receive Date: 20111005
  Receipt Date: 20110923
  Transmission Date: 20120403
  Serious: Yes (Other)
  Sender: FDA-Public Use
  Company Number: US-BAYER-2011-027748

PATIENT
  Age: 18 Year
  Sex: Female
  Weight: 59.864 kg

DRUGS (6)
  1. COLESTIPOL HYDROCHLORIDE [Concomitant]
     Indication: GASTROINTESTINAL DISORDER
     Dosage: UNK
     Dates: start: 20070301
  2. URSO FORTE [Concomitant]
     Indication: GASTROINTESTINAL DISORDER
     Dosage: UNK
     Dates: start: 20070301
  3. YASMIN [Suspect]
     Indication: ACNE
     Dosage: UNK
     Dates: start: 20051101, end: 20080101
  4. YASMIN [Suspect]
     Indication: MUSCLE SPASMS
  5. DROSPIRENONE AND ETHINYL ESTRADIOL [Suspect]
     Indication: MUSCLE SPASMS
  6. DROSPIRENONE AND ETHINYL ESTRADIOL [Suspect]
     Indication: ACNE
     Dosage: UNK
     Dates: start: 20051101, end: 20080101

REACTIONS (13)
  - DIARRHOEA [None]
  - PAIN [None]
  - ANHEDONIA [None]
  - ABDOMINAL DISTENSION [None]
  - GASTROENTERITIS EOSINOPHILIC [None]
  - INJURY [None]
  - ABDOMINAL PAIN UPPER [None]
  - REFLUX GASTRITIS [None]
  - ANXIETY [None]
  - GENERAL PHYSICAL HEALTH DETERIORATION [None]
  - NAUSEA [None]
  - GALLBLADDER DISORDER [None]
  - EMOTIONAL DISTRESS [None]
